FAERS Safety Report 6802893-7 (Version None)
Quarter: 2010Q2

REPORT INFORMATION
  Report Type: 
  Country: None (occurrence: None)
  Receive Date: 20100628
  Receipt Date: 20100503
  Transmission Date: 20101027
  Serious: No
  Sender: FDA-Public Use
  Company Number: US-TYCO HEALTHCARE/MALLINCKRODT-T201000794

PATIENT
  Sex: Male

DRUGS (2)
  1. TECHNETIUM TC 99M SESTAMIBI [Suspect]
     Indication: CARDIAC IMAGING PROCEDURE
     Dosage: UNK UNK, SINGLE
     Route: 042
     Dates: start: 20100303, end: 20100303
  2. ULTRA-TECHNEKOW [Concomitant]
     Indication: CARDIAC IMAGING PROCEDURE
     Dosage: 10.2 MCI, SINGLE
     Route: 042
     Dates: start: 20100303, end: 20100303

REACTIONS (1)
  - DRUG INEFFECTIVE [None]
